FAERS Safety Report 23720981 (Version 1)
Quarter: 2024Q2

REPORT INFORMATION
  Report Type: Spontaneous
  Country: US (occurrence: US)
  Receive Date: 20240409
  Receipt Date: 20240409
  Transmission Date: 20240716
  Serious: No
  Sender: FDA-Public Use
  Company Number: US-ELI_LILLY_AND_COMPANY-US202404000911

PATIENT
  Age: 62 Year
  Sex: Female

DRUGS (4)
  1. BASAGLAR [Suspect]
     Active Substance: INSULIN GLARGINE
     Indication: Diabetes mellitus
     Dosage: 10 U, DAILY
     Route: 058
     Dates: start: 202403
  2. BASAGLAR [Suspect]
     Active Substance: INSULIN GLARGINE
     Dosage: 10 U, DAILY
     Route: 058
  3. BASAGLAR [Suspect]
     Active Substance: INSULIN GLARGINE
     Dosage: 15 U, DAILY
     Route: 058
     Dates: start: 20240322
  4. METFORMIN [Concomitant]
     Active Substance: METFORMIN HYDROCHLORIDE
     Indication: Product used for unknown indication
     Dosage: 750 MG, BID

REACTIONS (1)
  - Accidental underdose [Unknown]

NARRATIVE: CASE EVENT DATE: 20240327
